FAERS Safety Report 16095741 (Version 1)
Quarter: 2019Q2

REPORT INFORMATION
  Report Type: Spontaneous
  Country: US (occurrence: US)
  Receive Date: 20190320
  Receipt Date: 20190320
  Transmission Date: 20190711
  Serious: Yes (Death)
  Sender: FDA-Public Use
  Company Number: None

PATIENT
  Sex: Male

DRUGS (9)
  1. METFORMIN 1000 MG TABLETS [Concomitant]
     Dates: start: 20181108
  2. SERTRALINE [Concomitant]
     Active Substance: SERTRALINE HYDROCHLORIDE
     Dates: start: 20181108
  3. CARVEDILOL 20MG ER TABLETS [Concomitant]
     Dates: start: 20181108
  4. ATORVASTATIN 80MG TABLETS [Concomitant]
     Dates: start: 20181108
  5. EXFORGE HCT 320-25MG TABLETS [Concomitant]
     Dates: start: 20181108
  6. HUMIRA [Suspect]
     Active Substance: ADALIMUMAB
     Indication: HIDRADENITIS
     Dosage: ?          OTHER FREQUENCY:EVERY WEEK;?
     Route: 058
  7. VICTOZA 18MG/3ML INJECTION [Concomitant]
     Dates: start: 20190306
  8. EZETIMIBE 10MG TABLETS [Concomitant]
     Dates: start: 20181108
  9. AMLODIPINE/VALSARTAN/HCTZ [Concomitant]
     Dates: start: 20181208

REACTIONS (1)
  - Death [None]
